FAERS Safety Report 14670471 (Version 2)
Quarter: 2018Q2

REPORT INFORMATION
  Report Type: Spontaneous
  Country: SE (occurrence: SE)
  Receive Date: 20180322
  Receipt Date: 20180430
  Transmission Date: 20180711
  Serious: No
  Sender: FDA-Public Use
  Company Number: SE-TEVA-2018-SE-868074

PATIENT
  Age: 77 Year
  Sex: Female

DRUGS (1)
  1. LOSARTAN TEVA [Suspect]
     Active Substance: LOSARTAN
     Dosage: 100 MILLIGRAM DAILY;
     Route: 048
     Dates: start: 2016

REACTIONS (4)
  - Rash pruritic [Recovered/Resolved]
  - Furuncle [Recovered/Resolved]
  - Feeling abnormal [Recovered/Resolved]
  - Product substitution issue [Unknown]

NARRATIVE: CASE EVENT DATE: 2016
